FAERS Safety Report 25888110 (Version 1)
Quarter: 2025Q4

REPORT INFORMATION
  Report Type: Spontaneous
  Country: US (occurrence: US)
  Receive Date: 20251007
  Receipt Date: 20251007
  Transmission Date: 20260117
  Serious: Yes (Other)
  Sender: STRIDES
  Company Number: US-STRIDES PHARMA UK LTD.-2024SP016412

PATIENT

DRUGS (3)
  1. PREDNISOLONE [Suspect]
     Active Substance: PREDNISOLONE
     Indication: Adenosine deaminase 2 deficiency
     Dosage: UNK, QD (5-10 MG DAILY ABOUT 3?MONTHS SINCE 2.5?YEARS OF AGE)
     Route: 048
  2. PREDNISOLONE [Suspect]
     Active Substance: PREDNISOLONE
     Indication: Congenital aplastic anaemia
  3. DEFERASIROX [Concomitant]
     Active Substance: DEFERASIROX
     Indication: Chelation therapy
     Dosage: UNK
     Route: 065

REACTIONS (1)
  - Cataract [Recovered/Resolved]
